FAERS Safety Report 19952037 (Version 1)
Quarter: 2021Q4

REPORT INFORMATION
  Report Type: Spontaneous
  Country: JP (occurrence: JP)
  Receive Date: 20211014
  Receipt Date: 20211014
  Transmission Date: 20220304
  Serious: Yes (Hospitalization, Other)
  Sender: FDA-Public Use
  Company Number: JP-LUPIN PHARMACEUTICALS INC.-2021-19563

PATIENT
  Age: 83 Year
  Sex: Female

DRUGS (1)
  1. RABEPRAZOLE [Suspect]
     Active Substance: RABEPRAZOLE
     Indication: Gastrooesophageal reflux disease
     Dosage: 10 MILLIGRAM, QD
     Route: 065

REACTIONS (4)
  - Gastric polyps [Recovered/Resolved]
  - Hypergastrinaemia [Unknown]
  - Anaemia [Recovering/Resolving]
  - Gastrointestinal polyp haemorrhage [Recovering/Resolving]

NARRATIVE: CASE EVENT DATE: 20140101
